FAERS Safety Report 8085450-7 (Version None)
Quarter: 2012Q1

REPORT INFORMATION
  Report Type: 
  Country: None (occurrence: None)
  Receive Date: 20120128
  Receipt Date: 20110411
  Transmission Date: 20120608
  Serious: No
  Sender: FDA-Public Use
  Company Number: US-ABBOTT-11P-163-0706032-00

PATIENT
  Sex: Female

DRUGS (4)
  1. HUMIRA [Suspect]
     Indication: PSORIASIS
     Dates: start: 20110101
  2. PROTONIX [Concomitant]
     Indication: PRODUCT USED FOR UNKNOWN INDICATION
  3. CELEXA [Concomitant]
     Indication: PRODUCT USED FOR UNKNOWN INDICATION
  4. EXCEDRINE [Concomitant]
     Indication: PAIN
     Dosage: AS NEEDED

REACTIONS (5)
  - FATIGUE [None]
  - DRUG DOSE OMISSION [None]
  - DEVICE MALFUNCTION [None]
  - HYPERHIDROSIS [None]
  - INJECTION SITE PAIN [None]
